FAERS Safety Report 15680550 (Version 1)
Quarter: 2018Q4

REPORT INFORMATION
  Report Type: Spontaneous
  Country: TW (occurrence: TW)
  Receive Date: 20181203
  Receipt Date: 20181203
  Transmission Date: 20190205
  Serious: Yes (Other)
  Sender: FDA-Public Use
  Company Number: TW-UNITED THERAPEUTICS-UNT-2018-019598

PATIENT
  Age: 48 Year
  Sex: Male

DRUGS (1)
  1. REMODULIN [Suspect]
     Active Substance: TREPROSTINIL
     Indication: PULMONARY ARTERIAL HYPERTENSION
     Dosage: 0.08 ?G/KG, CONTINUING
     Route: 058
     Dates: start: 20151103

REACTIONS (1)
  - Sarcoma [Unknown]

NARRATIVE: CASE EVENT DATE: 20181003
